FAERS Safety Report 12462033 (Version 2)
Quarter: 2016Q2

REPORT INFORMATION
  Report Type: Spontaneous
  Country: US (occurrence: US)
  Receive Date: 20160613
  Receipt Date: 20160617
  Transmission Date: 20160815
  Serious: Yes (Other)
  Sender: FDA-Public Use
  Company Number: US-PURDUE-USA-2016-0131526

PATIENT
  Age: 72 Year
  Sex: Female

DRUGS (1)
  1. OXYCONTIN [Suspect]
     Active Substance: OXYCODONE HYDROCHLORIDE
     Indication: PAIN
     Dosage: 80 MG, Q12H
     Route: 048

REACTIONS (12)
  - Fall [Unknown]
  - Nausea [Unknown]
  - Muscular weakness [Unknown]
  - Faeces discoloured [Unknown]
  - Pain in extremity [Unknown]
  - Hip fracture [Unknown]
  - Abdominal pain upper [Unknown]
  - Drug effect decreased [Unknown]
  - Abnormal faeces [Unknown]
  - Diarrhoea [Unknown]
  - Activities of daily living impaired [Unknown]
  - Vomiting [Unknown]

NARRATIVE: CASE EVENT DATE: 201510
